FAERS Safety Report 21968968 (Version 1)
Quarter: 2023Q1

REPORT INFORMATION
  Report Type: Spontaneous
  Country: US (occurrence: None)
  Receive Date: 20230207
  Receipt Date: 20230207
  Transmission Date: 20230417
  Serious: Yes (Disabling)
  Sender: FDA-Public Use
  Company Number: None

PATIENT
  Age: 73 Year
  Sex: Male
  Weight: 58.5 kg

DRUGS (8)
  1. OXCARBAZEPINE [Suspect]
     Active Substance: OXCARBAZEPINE
     Indication: Trigeminal neuralgia
     Dosage: OTHER QUANTITY : 120 TABLET(S);?FREQUENCY : 4 TIMES A DAY;?
     Route: 048
     Dates: start: 20230109, end: 20230129
  2. ROSUVASTATIN [Concomitant]
     Active Substance: ROSUVASTATIN
  3. LORATADINE [Concomitant]
     Active Substance: LORATADINE
  4. VITAMIN D [Concomitant]
     Active Substance: VITAMIN D NOS
  5. VITAMIN C [Concomitant]
     Active Substance: ASCORBIC ACID
  6. ZINC [Concomitant]
     Active Substance: ZINC
  7. VITAMIN B12 [Concomitant]
     Active Substance: CYANOCOBALAMIN
  8. ASPIRIN [Concomitant]
     Active Substance: ASPIRIN

REACTIONS (9)
  - Product use complaint [None]
  - Product substitution issue [None]
  - Drug ineffective [None]
  - Off label use [None]
  - Pain [None]
  - Product coating issue [None]
  - Hypophagia [None]
  - Product solubility abnormal [None]
  - Product taste abnormal [None]

NARRATIVE: CASE EVENT DATE: 20230109
